FAERS Safety Report 5543079-6 (Version None)
Quarter: 2007Q4

REPORT INFORMATION
  Report Type: 
  Country: None (occurrence: None)
  Receive Date: 20071210
  Receipt Date: 20071128
  Transmission Date: 20080405
  Serious: Yes (Other)
  Sender: FDA-Public Use
  Company Number: US-PFIZER INC-2007101084

PATIENT
  Sex: Female
  Weight: 81.8 kg

DRUGS (2)
  1. NEURONTIN [Suspect]
     Indication: PAIN
  2. REQUIP [Concomitant]

REACTIONS (1)
  - SUICIDAL IDEATION [None]
